FAERS Safety Report 4891334-5 (Version None)
Quarter: 2005Q4

REPORT INFORMATION
  Report Type: 
  Country: None (occurrence: None)
  Receive Date: 20051220
  Receipt Date: 20050825
  Transmission Date: 20060501
  Serious: Yes (Other)
  Sender: FDA-Public Use
  Company Number: 415660

PATIENT
  Age: 61 Year
  Sex: Female
  Weight: 41.7 kg

DRUGS (2)
  1. BONIVA [Suspect]
     Indication: OSTEOPOROSIS
     Dosage: 150 MG 1 PER MONTH, ORAL
     Route: 048
     Dates: start: 20050815
  2. ACIPHEX [Concomitant]

REACTIONS (1)
  - DYSPHONIA [None]
